FAERS Safety Report 13439730 (Version 4)
Quarter: 2017Q2

REPORT INFORMATION
  Report Type: Spontaneous
  Country: DE (occurrence: DE)
  Receive Date: 20170413
  Receipt Date: 20170519
  Transmission Date: 20170830
  Serious: Yes (Death, Hospitalization, Other)
  Sender: FDA-Public Use
  Company Number: DE-ABBVIE-17P-062-1942671-00

PATIENT
  Sex: Female

DRUGS (1)
  1. VENETOCLAX [Suspect]
     Active Substance: VENETOCLAX
     Indication: CHRONIC LYMPHOCYTIC LEUKAEMIA
     Route: 048

REACTIONS (8)
  - Anaemia [Unknown]
  - Agranulocytosis [Recovered/Resolved]
  - Aspergillus test [Unknown]
  - Sepsis [Unknown]
  - Pneumonia fungal [Fatal]
  - Pancytopenia [Unknown]
  - Neutropenia [Unknown]
  - Thrombocytopenia [Unknown]
